FAERS Safety Report 21332350 (Version 1)
Quarter: 2022Q3

REPORT INFORMATION
  Report Type: Spontaneous
  Country: US (occurrence: US)
  Receive Date: 20220914
  Receipt Date: 20220914
  Transmission Date: 20221026
  Serious: No
  Sender: FDA-Public Use
  Company Number: US-Vifor (International) Inc.-VIT-2022-06106

PATIENT
  Age: 61 Year
  Sex: Female

DRUGS (1)
  1. VELTASSA [Suspect]
     Active Substance: PATIROMER
     Indication: Acute kidney injury
     Dosage: DISSOLVE CONTENTS OF 1 PACKET INTO 1/3 CUP OF WATER AND DRINK THE FULL AMOUNT ONCE DAILY
     Route: 048

REACTIONS (2)
  - Flatulence [Unknown]
  - Off label use [Unknown]
